FAERS Safety Report 7605785-9 (Version None)
Quarter: 2011Q3

REPORT INFORMATION
  Report Type: 
  Country: None (occurrence: None)
  Receive Date: 20110705
  Receipt Date: 20110624
  Transmission Date: 20111222
  Serious: Yes (Death, Hospitalization, Other)
  Sender: FDA-Public Use
  Company Number: 2009AC000515

PATIENT
  Age: 51 Year
  Sex: Male

DRUGS (14)
  1. COLESEVELAM [Concomitant]
  2. CRESTOR [Concomitant]
  3. FUROSEMIDE [Concomitant]
  4. TRICOR [Concomitant]
  5. COREG [Concomitant]
  6. LORCET-HD [Concomitant]
  7. CAPOTEN [Concomitant]
  8. ATORVASTATIN [Concomitant]
  9. WELLBUTRIN [Concomitant]
  10. ZETIA [Concomitant]
  11. DIGOXIN [Suspect]
     Dosage: 0.25 MG;QD;PO
     Route: 048
     Dates: start: 19990801, end: 20071201
  12. ZOCOR [Concomitant]
  13. AVAPRO [Concomitant]
  14. IBUPROFEN [Concomitant]

REACTIONS (26)
  - TRAUMATIC LUNG INJURY [None]
  - LIVER INJURY [None]
  - VENTRICULAR FIBRILLATION [None]
  - BLOOD CREATINE PHOSPHOKINASE INCREASED [None]
  - PLEURAL EFFUSION [None]
  - ROAD TRAFFIC ACCIDENT [None]
  - HAEMOTHORAX [None]
  - JOINT RANGE OF MOTION DECREASED [None]
  - CARDIAC ARREST [None]
  - ECONOMIC PROBLEM [None]
  - FAMILY STRESS [None]
  - DEPRESSION [None]
  - FATIGUE [None]
  - ATRIOVENTRICULAR BLOCK FIRST DEGREE [None]
  - BUNDLE BRANCH BLOCK LEFT [None]
  - CLAVICLE FRACTURE [None]
  - ASTHENIA [None]
  - LOSS OF CONSCIOUSNESS [None]
  - MULTIPLE INJURIES [None]
  - VENTRICULAR EXTRASYSTOLES [None]
  - LACERATION [None]
  - RIB FRACTURE [None]
  - PNEUMOTHORAX [None]
  - UNEVALUABLE EVENT [None]
  - CORNEAL ABRASION [None]
  - NEUROPATHY PERIPHERAL [None]
